FAERS Safety Report 8130351-9 (Version None)
Quarter: 2012Q1

REPORT INFORMATION
  Report Type: 
  Country: None (occurrence: None)
  Receive Date: 20120210
  Receipt Date: 20120206
  Transmission Date: 20120608
  Serious: Yes (Death)
  Sender: FDA-Public Use
  Company Number: PHHY2012DE011160

PATIENT

DRUGS (1)
  1. EVEROLIMUS [Suspect]
     Indication: METASTATIC RENAL CELL CARCINOMA
     Dosage: 10 MG, DAILY

REACTIONS (1)
  - MYOCARDIAL INFARCTION [None]
